FAERS Safety Report 7248034-6 (Version None)
Quarter: 2011Q1

REPORT INFORMATION
  Report Type: 
  Country: None (occurrence: None)
  Receive Date: 20110127
  Receipt Date: 20110124
  Transmission Date: 20110831
  Serious: Yes (Other)
  Sender: FDA-Public Use
  Company Number: SE-PFIZER INC-2011016315

PATIENT
  Age: 74 Year
  Sex: Male

DRUGS (6)
  1. MADOPARK [Concomitant]
  2. LEVOTHYROXINE SODIUM [Concomitant]
  3. COMTESS [Concomitant]
  4. LYRICA [Suspect]
     Dosage: UNK
     Route: 048
  5. EXELON [Concomitant]
  6. TROMBYL [Concomitant]

REACTIONS (2)
  - PNEUMONIA [None]
  - DYSPHAGIA [None]
